FAERS Safety Report 6557203-X (Version None)
Quarter: 2010Q1

REPORT INFORMATION
  Report Type: 
  Country: None (occurrence: None)
  Receive Date: 20100127
  Receipt Date: 20100127
  Transmission Date: 20100710
  Serious: No
  Sender: FDA-Public Use
  Company Number: None

PATIENT
  Sex: Female
  Weight: 44.9061 kg

DRUGS (2)
  1. LUPRON DEPOT-PED [Suspect]
     Indication: PRECOCIOUS PUBERTY
     Dosage: 15MG EVERY MONTH IM
     Route: 030
     Dates: start: 20091103, end: 20091103
  2. LUPRON DEPOT-PED [Suspect]
     Indication: PRECOCIOUS PUBERTY
     Dosage: 15MG EVERY MONTH IM
     Route: 030
     Dates: start: 20091203, end: 20091203

REACTIONS (2)
  - INFECTION [None]
  - SUBCUTANEOUS ABSCESS [None]
